FAERS Safety Report 5811321-X (Version None)
Quarter: 2008Q3

REPORT INFORMATION
  Report Type: 
  Country: None (occurrence: None)
  Receive Date: 20080710
  Receipt Date: 20080701
  Transmission Date: 20090109
  Serious: Yes (Hospitalization)
  Sender: FDA-Public Use
  Company Number: GXKR2008HU06108

PATIENT
  Age: 64 Year
  Sex: Female

DRUGS (2)
  1. METHYLPREDNISOLONE [Suspect]
     Indication: RHEUMATOID ARTHRITIS
     Dosage: 8 MG, QD, ORAL, 125 MG, QD, INTRAVENOUS
     Route: 048
     Dates: end: 20051001
  2. METHOTREXATE [Concomitant]

REACTIONS (18)
  - ARTHRALGIA [None]
  - ASTHENIA [None]
  - DISEASE COMPLICATION [None]
  - DIZZINESS [None]
  - GASTRIC HAEMORRHAGE [None]
  - GASTRIC POLYPS [None]
  - HAEMATOCHEZIA [None]
  - HAEMATOMA [None]
  - HYPERGAMMAGLOBULINAEMIA [None]
  - HYPOTENSION [None]
  - JOINT SWELLING [None]
  - MUSCULOSKELETAL STIFFNESS [None]
  - OEDEMA MUCOSAL [None]
  - PALLOR [None]
  - PETECHIAE [None]
  - TACHYCARDIA [None]
  - THROMBOCYTOPENIC PURPURA [None]
  - VERTIGO [None]
